FAERS Safety Report 6308920-8 (Version None)
Quarter: 2009Q3

REPORT INFORMATION
  Report Type: 
  Country: None (occurrence: None)
  Receive Date: 20090813
  Receipt Date: 20090526
  Transmission Date: 20100115
  Serious: No
  Sender: FDA-Public Use
  Company Number: US-ALLERGAN-0907384US

PATIENT
  Age: 71 Year
  Sex: Female

DRUGS (2)
  1. COMBIGAN [Suspect]
     Indication: GLAUCOMA
     Dosage: 1 GTT, BID
     Route: 047
  2. NAPRON [Concomitant]
     Indication: SPONDYLITIS
     Dosage: 500 MG, PRN
     Route: 048

REACTIONS (2)
  - EYE PAIN [None]
  - HEADACHE [None]
